FAERS Safety Report 14324402 (Version 3)
Quarter: 2018Q1

REPORT INFORMATION
  Report Type: Spontaneous
  Country: BY (occurrence: BY)
  Receive Date: 20171226
  Receipt Date: 20180105
  Transmission Date: 20180509
  Serious: Yes (Death)
  Sender: FDA-Public Use
  Company Number: BY-MALLINCKRODT-T201705319

PATIENT
  Age: 70 Year
  Sex: Male

DRUGS (13)
  1. GABAPENTIN. [Suspect]
     Active Substance: GABAPENTIN
     Dosage: 300 MG, 3 IN 1 DAY
     Route: 065
     Dates: start: 20160110
  2. CHLORPROTHIXENE [Suspect]
     Active Substance: CHLORPROTHIXENE
     Dosage: 50 MG, 1 IN 1 DAY
     Dates: start: 20170110
  3. MORPHINE SULFATE. [Suspect]
     Active Substance: MORPHINE SULFATE
     Indication: PAIN
     Dosage: 120 MG, IN 1 DAY
     Route: 065
     Dates: start: 20170125, end: 20170302
  4. MORPHINE HYDROCHLORIDE [Suspect]
     Active Substance: MORPHINE HYDROCHLORIDE
     Indication: PAIN
     Dosage: UNK
     Route: 065
     Dates: start: 20170110, end: 20170125
  5. EXALGO [Suspect]
     Active Substance: HYDROMORPHONE HYDROCHLORIDE
     Indication: PAIN
     Dosage: 8 MG, 1 IN 1 DAY
     Route: 048
     Dates: start: 20170130, end: 2017
  6. TRAMADOL. [Suspect]
     Active Substance: TRAMADOL
     Indication: PAIN
     Dosage: 400 MG, 1 IN 1 DAY
     Route: 065
     Dates: start: 20161222
  7. DEXAMETHASONE. [Suspect]
     Active Substance: DEXAMETHASONE
     Indication: PAIN
     Dosage: 4 PERCENT
     Route: 030
     Dates: start: 20170110
  8. DICLOFENAC SODIUM. [Suspect]
     Active Substance: DICLOFENAC SODIUM
     Indication: PAIN
     Dosage: 75 MG, 2 IN 1 DAY,
     Route: 030
     Dates: start: 20170110
  9. GABAPENTIN. [Suspect]
     Active Substance: GABAPENTIN
     Indication: PAIN
     Dosage: 2 DOSE(S), 3 IN 1 DAY
     Route: 065
     Dates: start: 20161222, end: 2017
  10. CHLORPROTHIXENE [Suspect]
     Active Substance: CHLORPROTHIXENE
     Indication: PAIN
     Dosage: UNK
     Route: 065
     Dates: start: 20161222, end: 2017
  11. MORPHINE HYDROCHLORIDE [Suspect]
     Active Substance: MORPHINE HYDROCHLORIDE
     Dosage: UNK
     Route: 058
     Dates: start: 20170302
  12. EXALGO [Suspect]
     Active Substance: HYDROMORPHONE HYDROCHLORIDE
     Dosage: 32 MG, 1 IN 1 DAY
     Route: 048
     Dates: start: 2017, end: 20170302
  13. DUROGESIC [Suspect]
     Active Substance: FENTANYL
     Indication: PAIN
     Dosage: 25 MCG/ HOUR
     Route: 062
     Dates: end: 20170110

REACTIONS (9)
  - Choking [Not Recovered/Not Resolved]
  - Anxiety [Unknown]
  - Decreased appetite [Unknown]
  - General physical health deterioration [Fatal]
  - Dysphagia [Not Recovered/Not Resolved]
  - Pain [Not Recovered/Not Resolved]
  - Asthenia [Not Recovered/Not Resolved]
  - Constipation [Unknown]
  - Malignant neoplasm progression [Fatal]

NARRATIVE: CASE EVENT DATE: 20170302
